FAERS Safety Report 21905911 (Version 2)
Quarter: 2023Q1

REPORT INFORMATION
  Report Type: Report from Study
  Country: US (occurrence: US)
  Receive Date: 20230124
  Receipt Date: 20230130
  Transmission Date: 20230418
  Serious: Yes (Hospitalization, Other)
  Sender: FDA-Public Use
  Company Number: US-GILEAD-2023-0614018

PATIENT
  Sex: Male

DRUGS (26)
  1. AZTREONAM LYSINE [Suspect]
     Active Substance: AZTREONAM LYSINE
     Indication: Illness
     Dosage: 1 DOSAGE FORM, TID (ILLNESS UNSPECIFIED)
     Route: 055
  2. AZTREONAM LYSINE [Suspect]
     Active Substance: AZTREONAM LYSINE
     Indication: Bacterial infection
  3. HUMULIN N [Concomitant]
     Active Substance: INSULIN HUMAN
  4. ATORVASTATIN [Concomitant]
     Active Substance: ATORVASTATIN
  5. CYANOCOBALAMIN [Concomitant]
     Active Substance: CYANOCOBALAMIN
  6. ASPIRIN [Concomitant]
     Active Substance: ASPIRIN
  7. LOSARTAN [Concomitant]
     Active Substance: LOSARTAN
  8. TYLENOL [Concomitant]
     Active Substance: ACETAMINOPHEN
  9. GLIPIZIDE [Concomitant]
     Active Substance: GLIPIZIDE
  10. STRIVERDI RESPIMAT [Concomitant]
     Active Substance: OLODATEROL HYDROCHLORIDE
  11. ALPROSTADIL [Concomitant]
     Active Substance: ALPROSTADIL
  12. AZITHROMYCIN [Concomitant]
     Active Substance: AZITHROMYCIN
  13. FLAXSEED [Concomitant]
     Active Substance: FLAX SEED
  14. LORATADINE [Concomitant]
     Active Substance: LORATADINE
  15. BENZONATATE [Concomitant]
     Active Substance: BENZONATATE
  16. GLUCOSAMINE [Concomitant]
     Active Substance: GLUCOSAMINE
  17. OXYMETAZOLINE HYDROCHLORIDE [Concomitant]
     Active Substance: OXYMETAZOLINE HYDROCHLORIDE
  18. CALCIUM CARBONATE [Concomitant]
     Active Substance: CALCIUM CARBONATE
  19. CULTURELLE [Concomitant]
     Active Substance: LACTOBACILLUS RHAMNOSUS
  20. POTASSIUM GLUCONATE [Concomitant]
     Active Substance: POTASSIUM GLUCONATE
  21. OMEPRAZOLE [Concomitant]
     Active Substance: OMEPRAZOLE
  22. MUCINEX [Concomitant]
     Active Substance: GUAIFENESIN
  23. FUROSEMIDE [Concomitant]
     Active Substance: FUROSEMIDE
  24. PROBIOTICS NOS [Concomitant]
     Active Substance: PROBIOTICS NOS
  25. ALPHA LIPOIC ACID [Concomitant]
     Active Substance: .ALPHA.-LIPOIC ACID
  26. ALBUTEROL SULFATE [Concomitant]
     Active Substance: ALBUTEROL SULFATE

REACTIONS (2)
  - Influenza [Unknown]
  - Pneumonia [Unknown]
